FAERS Safety Report 13709967 (Version 1)
Quarter: 2017Q3

REPORT INFORMATION
  Report Type: Spontaneous
  Country: CA (occurrence: CA)
  Receive Date: 20170703
  Receipt Date: 20170703
  Transmission Date: 20171127
  Serious: Yes (Other)
  Sender: FDA-Public Use
  Company Number: CA-TAKEDA-2017TUS014200

PATIENT
  Age: 55 Year
  Sex: Male

DRUGS (7)
  1. CIPRALEX [Suspect]
     Active Substance: ESCITALOPRAM OXALATE
     Dosage: 10 MG, UNK
     Route: 065
  2. TRINTELLIX [Suspect]
     Active Substance: VORTIOXETINE HYDROBROMIDE
     Indication: OBSESSIVE-COMPULSIVE DISORDER
     Dosage: UNK
     Route: 065
  3. CIPRALEX [Suspect]
     Active Substance: ESCITALOPRAM OXALATE
     Indication: PRODUCT USED FOR UNKNOWN INDICATION
     Dosage: 5 MG, UNK
     Route: 065
  4. TRINTELLIX [Suspect]
     Active Substance: VORTIOXETINE HYDROBROMIDE
     Indication: DEPRESSION
     Dosage: 10 MG, QD
     Route: 065
     Dates: start: 20160629
  5. TRINTELLIX [Suspect]
     Active Substance: VORTIOXETINE HYDROBROMIDE
     Indication: ANXIETY
     Dosage: UNK
     Route: 065
  6. CIPRALEX [Suspect]
     Active Substance: ESCITALOPRAM OXALATE
     Dosage: 7.5 MG, UNK
     Route: 065
  7. CELEXA [Suspect]
     Active Substance: CITALOPRAM HYDROBROMIDE
     Indication: PRODUCT USED FOR UNKNOWN INDICATION
     Dosage: UNK
     Route: 065

REACTIONS (9)
  - Fatigue [Unknown]
  - Bruxism [Not Recovered/Not Resolved]
  - Sexual dysfunction [Unknown]
  - Disturbance in attention [Unknown]
  - Agitation [Unknown]
  - Mental impairment [Not Recovered/Not Resolved]
  - Anxiety [Not Recovered/Not Resolved]
  - Dizziness [Unknown]
  - Drug ineffective [Not Recovered/Not Resolved]
